FAERS Safety Report 10229578 (Version 1)
Quarter: 2014Q2

REPORT INFORMATION
  Report Type: Spontaneous
  Country: US (occurrence: US)
  Receive Date: 20140611
  Receipt Date: 20140611
  Transmission Date: 20141212
  Serious: Yes (Other)
  Sender: FDA-Public Use
  Company Number: US-JNJCP-30000223269

PATIENT
  Sex: Female
  Weight: 50 kg

DRUGS (4)
  1. NEUTROGENA ULTRA SHEER SUNBLOCK SPF70 [Suspect]
     Indication: PROPHYLAXIS
     Dosage: APPLIED LIBERALLY ON ALL EXPOSED SKIN, EVERY TWO AND A HALF HOURS
     Route: 061
  2. CENTRUM SILVER [Concomitant]
     Indication: ROUTINE HEALTH MAINTENANCE
     Dosage: ONE PER DAY SINCE YEARS
  3. COD LIVER OIL [Concomitant]
     Indication: ROUTINE HEALTH MAINTENANCE
     Dosage: ONE PER DAY SINCE YEARS
  4. NEUTROGENA ULTRA SHEER SUNBLOCK SPF70 [Suspect]
     Indication: PROPHYLAXIS
     Dosage: APPLIED LIBERALLY ON ALL EXPOSED SKIN, EVERY TWO AND A HALF HOURS
     Route: 061

REACTIONS (1)
  - Skin cancer [Recovered/Resolved]
